FAERS Safety Report 9319996 (Version 3)
Quarter: 2013Q4

REPORT INFORMATION
  Report Type: Spontaneous
  Country: IT (occurrence: IT)
  Receive Date: 20130530
  Receipt Date: 20131009
  Transmission Date: 20140711
  Serious: Yes (Life-Threatening, Other)
  Sender: FDA-Public Use
  Company Number: IT-ELI_LILLY_AND_COMPANY-IT201305006956

PATIENT
  Age: 71 Year
  Sex: Female

DRUGS (7)
  1. FORSTEO [Suspect]
     Indication: OSTEOPOROSIS
     Dosage: 20MCG/DAY
     Route: 058
     Dates: start: 20120913, end: 20130513
  2. CLODY [Concomitant]
     Dosage: 200 MG, UNKNOWN
     Route: 030
  3. LANSOPRAZOLE [Concomitant]
     Dosage: 15 MG, EACH MORNING
  4. LANSOPRAZOLE [Concomitant]
     Dosage: 30 MG, EACH MORNING
  5. DIDROGYL [Concomitant]
     Dosage: 20GTTS
     Route: 048
  6. AIRTAL [Concomitant]
     Dosage: 100 MG, QD
  7. VOLTAREN                           /00372302/ [Concomitant]
     Dosage: UNK, QD
     Route: 030

REACTIONS (6)
  - Angina pectoris [Unknown]
  - Tachycardia [Recovered/Resolved]
  - Ischaemia [Recovered/Resolved]
  - Asthenia [Recovered/Resolved]
  - Discomfort [Unknown]
  - Fear of death [Unknown]
